FAERS Safety Report 7434071-5 (Version None)
Quarter: 2011Q2

REPORT INFORMATION
  Report Type: 
  Country: None (occurrence: None)
  Receive Date: 20110425
  Receipt Date: 20110412
  Transmission Date: 20111010
  Serious: Yes (Other)
  Sender: FDA-Public Use
  Company Number: CA-BAYER-2011-028528

PATIENT
  Sex: Male

DRUGS (14)
  1. CELEBREX [Concomitant]
     Dosage: 200 MG, 1 DF, QD
  2. DOVOBET [Concomitant]
     Dosage: 0.5 MG, BID
  3. COVERSYL [Concomitant]
     Dosage: 8 MG, QD
     Route: 048
  4. BETADERM [BETAMETHASONE VALERATE] [Concomitant]
     Dosage: 0.1 % BID
     Route: 061
  5. APO-CEPHALEX [Concomitant]
     Dosage: 500 MG, BID
  6. BETASERON [Suspect]
     Dosage: UNK, QOD
     Route: 058
     Dates: start: 20110408
  7. UNKNOWN [Concomitant]
     Dosage: 30 ML, BID
     Route: 048
  8. BETASERON [Suspect]
     Indication: PRODUCT USED FOR UNKNOWN INDICATION
     Dosage: UNK
     Dates: start: 19990101
  9. DOVONEX [Concomitant]
     Dosage: 50 ?G, QD
  10. CRESTOR [Concomitant]
     Dosage: 5 MG, QD
  11. ZOLOFT [Concomitant]
     Dosage: 50 MG, QD
  12. DILAUDID [Suspect]
     Indication: ANALGESIC THERAPY
     Dosage: UNK
     Dates: end: 20110406
  13. PROGRAF [Concomitant]
     Dosage: 3 DF, BID
     Route: 048
  14. ATROVENT [Concomitant]
     Dosage: 0.6 %, 1 PUFF. PRN
     Route: 002

REACTIONS (4)
  - FALL [None]
  - JOINT INJURY [None]
  - HALLUCINATION [None]
  - CONFUSIONAL STATE [None]
